FAERS Safety Report 6187445-7 (Version None)
Quarter: 2009Q2

REPORT INFORMATION
  Report Type: 
  Country: None (occurrence: None)
  Receive Date: 20090512
  Receipt Date: 20090506
  Transmission Date: 20091009
  Serious: Yes (Life-Threatening)
  Sender: FDA-Public Use
  Company Number: DE-MERCK-0905DEU00029

PATIENT
  Age: 53 Year
  Sex: Male
  Weight: 91 kg

DRUGS (2)
  1. JANUMET [Suspect]
     Indication: TYPE 2 DIABETES MELLITUS
     Route: 048
     Dates: start: 20080828, end: 20090331
  2. VALSARTAN [Concomitant]
     Indication: HYPERTENSION
     Route: 048
     Dates: start: 20081231, end: 20090506

REACTIONS (3)
  - DIARRHOEA [None]
  - HYPERKALAEMIA [None]
  - PRURITUS [None]
